FAERS Safety Report 5218912-8 (Version None)
Quarter: 2007Q1

REPORT INFORMATION
  Report Type: 
  Country: None (occurrence: None)
  Receive Date: 20070125
  Receipt Date: 20070118
  Transmission Date: 20070707
  Serious: Yes (Other)
  Sender: FDA-Public Use
  Company Number: US-JNJFOC-20070104529

PATIENT
  Sex: Female

DRUGS (11)
  1. INFLIXIMAB [Suspect]
     Indication: RHEUMATOID ARTHRITIS
     Route: 042
  2. NORVASC [Concomitant]
  3. MODURETIC 5-50 [Concomitant]
     Dosage: 5/50 DAILY
  4. AXID [Concomitant]
  5. CRESTOR [Concomitant]
  6. ACTONEL [Concomitant]
  7. CYMBALTA [Concomitant]
  8. LYRICA [Concomitant]
  9. POTASSIUM ACETATE [Concomitant]
  10. PERCOCET [Concomitant]
  11. CLARINEX [Concomitant]

REACTIONS (1)
  - RENAL CELL CARCINOMA STAGE UNSPECIFIED [None]
